FAERS Safety Report 13045667 (Version 1)
Quarter: 2016Q4

REPORT INFORMATION
  Report Type: Spontaneous
  Country: US (occurrence: US)
  Receive Date: 20161220
  Receipt Date: 20161220
  Transmission Date: 20170207
  Serious: Yes (Life-Threatening)
  Sender: FDA-Public Use
  Company Number: None

PATIENT
  Age: 60 Year
  Sex: Female
  Weight: 54.48 kg

DRUGS (3)
  1. DOXYCYCLINE. [Suspect]
     Active Substance: DOXYCYCLINE
     Indication: ROCKY MOUNTAIN SPOTTED FEVER
     Dosage: ?          QUANTITY:LL-AX (:18IN;?
     Route: 048
     Dates: start: 20161012, end: 20161031
  2. PREMPRO [Concomitant]
     Active Substance: ESTROGENS, CONJUGATED\MEDROXYPROGESTERONE ACETATE
  3. IBP. [Concomitant]

REACTIONS (8)
  - Balance disorder [None]
  - Eye pain [None]
  - Dizziness [None]
  - Headache [None]
  - Gait disturbance [None]
  - Gastric disorder [None]
  - Mental impairment [None]
  - Sleep disorder [None]

NARRATIVE: CASE EVENT DATE: 20161016
